FAERS Safety Report 6343380-2 (Version None)
Quarter: 2009Q3

REPORT INFORMATION
  Report Type: 
  Country: None (occurrence: None)
  Receive Date: 20090908
  Receipt Date: 20090901
  Transmission Date: 20100115
  Serious: Yes (Death, Hospitalization)
  Sender: FDA-Public Use
  Company Number: PHHO2009FR10638

PATIENT
  Sex: Male
  Weight: 71 kg

DRUGS (2)
  1. RAD 666 RAD+TAB [Suspect]
     Indication: RENAL CANCER METASTATIC
     Dosage: 10MG
     Route: 048
     Dates: start: 20090609, end: 20090722
  2. CORTICOSTEROID NOS [Concomitant]

REACTIONS (16)
  - AORTIC STENOSIS [None]
  - ATELECTASIS [None]
  - ATRIAL FIBRILLATION [None]
  - BUNDLE BRANCH BLOCK RIGHT [None]
  - CARDIAC FAILURE [None]
  - CARDIOMEGALY [None]
  - DILATATION ATRIAL [None]
  - EJECTION FRACTION DECREASED [None]
  - INCREASED UPPER AIRWAY SECRETION [None]
  - ISCHAEMIC CARDIOMYOPATHY [None]
  - LEFT VENTRICULAR HYPERTROPHY [None]
  - LUNG DISORDER [None]
  - MITRAL VALVE INCOMPETENCE [None]
  - PLEURAL EFFUSION [None]
  - RENAL FAILURE ACUTE [None]
  - SECRETION DISCHARGE [None]
